FAERS Safety Report 5422610-5 (Version None)
Quarter: 2007Q3

REPORT INFORMATION
  Report Type: 
  Country: None (occurrence: None)
  Receive Date: 20070822
  Receipt Date: 20070813
  Transmission Date: 20080115
  Serious: No
  Sender: FDA-Public Use
  Company Number: US-BAXTER-2007BH007094

PATIENT
  Age: 1 Day
  Sex: Female

DRUGS (2)
  1. GLUCOSE (DEXTROSE) SOLUTION FOR INTRAVENOUS INFUSION 10% [Suspect]
     Indication: PREMATURE BABY
     Dosage: DOSE UNIT:CUBIC CENTIMETER
     Route: 042
     Dates: start: 20070712, end: 20070712
  2. CALCIUM GLUCONATE [Suspect]
     Indication: PREMATURE BABY
     Route: 042
     Dates: start: 20070712, end: 20070712

REACTIONS (4)
  - BLOOD GLUCOSE INCREASED [None]
  - DEVICE FAILURE [None]
  - INCORRECT DOSE ADMINISTERED [None]
  - MEDICATION ERROR [None]
